FAERS Safety Report 5382977-3 (Version None)
Quarter: 2007Q3

REPORT INFORMATION
  Report Type: 
  Country: None (occurrence: None)
  Receive Date: 20070710
  Receipt Date: 20070702
  Transmission Date: 20080115
  Serious: Yes (Hospitalization)
  Sender: FDA-Public Use
  Company Number: B0458745A

PATIENT
  Age: 62 Year
  Sex: Male
  Weight: 60.8 kg

DRUGS (5)
  1. GW679769 [Suspect]
     Dates: start: 20070209
  2. ZOFRAN [Suspect]
     Route: 042
     Dates: start: 20070209
  3. DEXAMETHASONE 0.5MG TAB [Suspect]
     Route: 048
     Dates: start: 20070209
  4. CISPLATIN [Suspect]
     Dosage: 125MG SINGLE DOSE
     Route: 042
     Dates: start: 20070209, end: 20070209
  5. FLUOROURACIL [Suspect]
     Dosage: 4225MG SEE DOSAGE TEXT
     Route: 042

REACTIONS (3)
  - BLOOD CREATININE INCREASED [None]
  - BLOOD UREA INCREASED [None]
  - DEHYDRATION [None]
